FAERS Safety Report 17952064 (Version 1)
Quarter: 2020Q2

REPORT INFORMATION
  Report Type: Report from Study
  Country: GB (occurrence: GB)
  Receive Date: 20200626
  Receipt Date: 20200626
  Transmission Date: 20200714
  Serious: Yes (Other)
  Sender: FDA-Public Use
  Company Number: PHHY2015GB166272

PATIENT
  Sex: Male

DRUGS (1)
  1. GILENYA [Suspect]
     Active Substance: FINGOLIMOD HYDROCHLORIDE
     Indication: MULTIPLE SCLEROSIS
     Dosage: 0.5 MG, QD
     Route: 048
     Dates: start: 20131107, end: 201410

REACTIONS (11)
  - Back pain [Unknown]
  - Pharyngitis [Not Recovered/Not Resolved]
  - Mobility decreased [Not Recovered/Not Resolved]
  - Nasopharyngitis [Unknown]
  - Fatigue [Unknown]
  - Lower respiratory tract infection [Not Recovered/Not Resolved]
  - Vision blurred [Unknown]
  - Urinary tract infection [Not Recovered/Not Resolved]
  - Eye pain [Unknown]
  - Musculoskeletal pain [Not Recovered/Not Resolved]
  - Headache [Unknown]
